FAERS Safety Report 4301174-3 (Version None)
Quarter: 2004Q1

REPORT INFORMATION
  Report Type: 
  Country: None (occurrence: None)
  Receive Date: 20040218
  Receipt Date: 20031027
  Transmission Date: 20041129
  Serious: No
  Sender: FDA-Public Use
  Company Number: 2003-10-3226

PATIENT
  Sex: Female

DRUGS (7)
  1. PEG-INTRON [Suspect]
     Indication: HEPATITIS C
     Dosage: UNKNOWN SUBCUTANEOUS
     Dates: start: 20030728
  2. REBETOL [Suspect]
     Indication: HEPATITIS C
     Dosage: UNKOWN ORAL
     Dates: start: 20030728
  3. BENADRYL [Concomitant]
  4. ALLEGRA [Concomitant]
  5. NORVASC [Concomitant]
  6. ATIVAN [Concomitant]
  7. ATIVAN [Concomitant]
     Dates: start: 20031001

REACTIONS (6)
  - AFFECT LABILITY [None]
  - DEPRESSION [None]
  - FATIGUE [None]
  - INJECTION SITE INFLAMMATION [None]
  - PRURITUS [None]
  - TEARFULNESS [None]
